FAERS Safety Report 8956603 (Version 2)
Quarter: 2013Q1

REPORT INFORMATION
  Report Type: Spontaneous
  Country: FR (occurrence: FR)
  Receive Date: 20121210
  Receipt Date: 20130102
  Transmission Date: 20140127
  Serious: Yes (Other)
  Sender: FDA-Public Use
  Company Number: FR-JNJFOC-20121200044

PATIENT
  Age: 47 Year
  Sex: Female

DRUGS (4)
  1. REMICADE [Suspect]
     Indication: VOGT-KOYANAGI-HARADA SYNDROME
     Route: 042
     Dates: start: 2010
  2. REMICADE [Suspect]
     Indication: VOGT-KOYANAGI-HARADA SYNDROME
     Dosage: 7TH INFUSION
     Route: 042
  3. PREDNISONE [Concomitant]
     Route: 065
  4. PREDNISONE [Concomitant]
     Route: 065

REACTIONS (3)
  - Pulmonary tuberculosis [Recovering/Resolving]
  - Tuberculosis liver [Recovering/Resolving]
  - Pre-existing condition improved [Unknown]
